FAERS Safety Report 7352509-9 (Version None)
Quarter: 2011Q1

REPORT INFORMATION
  Report Type: 
  Country: None (occurrence: None)
  Receive Date: 20110315
  Receipt Date: 20110311
  Transmission Date: 20110831
  Serious: Yes (Other)
  Sender: FDA-Public Use
  Company Number: AU-PFIZER INC-2011053711

PATIENT
  Age: 39 Year
  Sex: Female

DRUGS (5)
  1. EFFEXOR XR [Suspect]
     Indication: LOSS OF LIBIDO
  2. TRYPTOPHAN, L- [Concomitant]
     Dosage: UNK
  3. ANASTROZOLE [Concomitant]
     Dosage: UNK
  4. EFFEXOR XR [Suspect]
     Indication: HOT FLUSH
     Dosage: 37.5 MG AT NIGHT WITH FOOD FOR THE FIRST 7 DYAS TO BE INCREASED TO 75MG
     Dates: start: 20110307
  5. MELATONIN [Concomitant]
     Dosage: UNK

REACTIONS (9)
  - HEARING IMPAIRED [None]
  - HALLUCINATION, AUDITORY [None]
  - DIZZINESS [None]
  - EAR DISCOMFORT [None]
  - ALTERED STATE OF CONSCIOUSNESS [None]
  - PARAESTHESIA [None]
  - EPISTAXIS [None]
  - NAUSEA [None]
  - MUSCULOSKELETAL CHEST PAIN [None]
